FAERS Safety Report 7413688-8 (Version None)
Quarter: 2011Q2

REPORT INFORMATION
  Report Type: 
  Country: None (occurrence: None)
  Receive Date: 20110413
  Receipt Date: 20110316
  Transmission Date: 20111010
  Serious: No
  Sender: FDA-Public Use
  Company Number: JP-ROCHE-764009

PATIENT
  Age: 63 Year
  Sex: Female

DRUGS (2)
  1. COPEGUS [Suspect]
     Route: 048
  2. PEGINTERFERON ALFA-2B [Suspect]
     Route: 058

REACTIONS (1)
  - TYPE 1 DIABETES MELLITUS [None]
